FAERS Safety Report 25984433 (Version 1)
Quarter: 2025Q4

REPORT INFORMATION
  Report Type: Spontaneous
  Country: US (occurrence: None)
  Receive Date: 20251030
  Receipt Date: 20251030
  Transmission Date: 20260117
  Serious: Yes (Other)
  Sender: FDA-CTU
  Company Number: None

PATIENT
  Age: 64 Year
  Sex: Female
  Weight: 75.6 kg

DRUGS (7)
  1. LISINOPRIL [Suspect]
     Active Substance: LISINOPRIL
     Indication: Hypertension
     Dosage: 1 TABLET OAL ?
     Route: 048
     Dates: start: 20250718, end: 20250930
  2. LEVOTHYROXINE [Concomitant]
     Active Substance: LEVOTHYROXINE
  3. HYDROCHLOROTHIAZIDE [Concomitant]
     Active Substance: HYDROCHLOROTHIAZIDE
  4. FAMOTIDINE [Concomitant]
     Active Substance: FAMOTIDINE
  5. Vitamins B12 [Concomitant]
  6. BIOTIN [Concomitant]
     Active Substance: BIOTIN
  7. ZINC [Concomitant]
     Active Substance: ZINC

REACTIONS (1)
  - Angioedema [None]

NARRATIVE: CASE EVENT DATE: 20250929
